FAERS Safety Report 4902920-8 (Version None)
Quarter: 2006Q1

REPORT INFORMATION
  Report Type: 
  Country: None (occurrence: None)
  Receive Date: 20060207
  Receipt Date: 20060127
  Transmission Date: 20060701
  Serious: Yes (Hospitalization)
  Sender: FDA-Public Use
  Company Number: US-AMGEN-US166717

PATIENT
  Sex: Male

DRUGS (16)
  1. ARANESP [Suspect]
     Indication: MYELODYSPLASTIC SYNDROME
     Dates: end: 20060105
  2. INDERAL [Concomitant]
  3. ARICEPT [Concomitant]
  4. ASPIRIN [Concomitant]
  5. LOPID [Concomitant]
  6. PRIMIDONE [Concomitant]
  7. CENTRUM [Concomitant]
  8. AVODART [Concomitant]
  9. VANTIN [Concomitant]
  10. SYNTHROID [Concomitant]
  11. BACTRIM DS [Concomitant]
  12. COUMADIN [Concomitant]
  13. LEXAPRO [Concomitant]
  14. PRILOSEC [Concomitant]
  15. FOLIC ACID [Concomitant]
  16. NASONEX [Concomitant]

REACTIONS (2)
  - ANAEMIA [None]
  - COUGH [None]
